FAERS Safety Report 25554853 (Version 1)
Quarter: 2025Q3

REPORT INFORMATION
  Report Type: Spontaneous
  Country: US (occurrence: US)
  Receive Date: 20250715
  Receipt Date: 20250715
  Transmission Date: 20251020
  Serious: Yes (Other)
  Sender: SANOFI AVENTIS
  Company Number: US-SA-2025SA198172

PATIENT
  Age: 79 Year
  Sex: Female
  Weight: 74.55 kg

DRUGS (8)
  1. DUPIXENT [Suspect]
     Active Substance: DUPILUMAB
     Dosage: 300 MG, QOW
     Route: 058
  2. MYRBETRIQ [Concomitant]
     Active Substance: MIRABEGRON
  3. PACERONE [Concomitant]
     Active Substance: AMIODARONE HYDROCHLORIDE
  4. PANTOPRAZOLE SODIUM [Concomitant]
     Active Substance: PANTOPRAZOLE SODIUM
  5. METOPROLOL TARTRATE [Concomitant]
     Active Substance: METOPROLOL TARTRATE
  6. ATORVASTATIN CALCIUM [Concomitant]
     Active Substance: ATORVASTATIN CALCIUM
  7. TRAZODONE [Concomitant]
     Active Substance: TRAZODONE HYDROCHLORIDE
  8. SYNTHROID [Concomitant]
     Active Substance: LEVOTHYROXINE SODIUM

REACTIONS (1)
  - Kidney infection [Recovered/Resolved]

NARRATIVE: CASE EVENT DATE: 20250704
